FAERS Safety Report 24185603 (Version 2)
Quarter: 2024Q4

REPORT INFORMATION
  Report Type: Spontaneous
  Country: US (occurrence: US)
  Receive Date: 20240807
  Receipt Date: 20241006
  Transmission Date: 20250115
  Serious: No
  Sender: BAUSCH AND LOMB
  Company Number: US-BAUSCHBL-2024BNL030587

PATIENT
  Age: 67 Year
  Sex: Female

DRUGS (1)
  1. XIIDRA [Suspect]
     Active Substance: LIFITEGRAST
     Indication: Product used for unknown indication
     Route: 047

REACTIONS (6)
  - Burning sensation [Unknown]
  - Product container issue [Unknown]
  - Accidental exposure to product [Unknown]
  - Product dose omission in error [Unknown]
  - Product use complaint [Unknown]
  - Exposure via skin contact [Unknown]
